FAERS Safety Report 5505750-1 (Version None)
Quarter: 2007Q4

REPORT INFORMATION
  Report Type: 
  Country: None (occurrence: None)
  Receive Date: 20071102
  Receipt Date: 20071031
  Transmission Date: 20080405
  Serious: Yes (Other)
  Sender: FDA-Public Use
  Company Number: JP-ALLERGAN-0712048US

PATIENT
  Sex: Male

DRUGS (2)
  1. ALESION SYRUP [Suspect]
     Indication: ECZEMA
     Dosage: 10 MG, SINGLE
     Route: 048
     Dates: start: 20071011, end: 20071011
  2. TEGRETOL [Concomitant]
     Indication: EPILEPSY
     Route: 048

REACTIONS (1)
  - CONVULSION [None]
